FAERS Safety Report 9193586 (Version 12)
Quarter: 2014Q3

REPORT INFORMATION
  Report Type: Spontaneous
  Country: US (occurrence: US)
  Receive Date: 20130327
  Receipt Date: 20140707
  Transmission Date: 20150326
  Serious: Yes (Hospitalization)
  Sender: FDA-Public Use
  Company Number: US-JNJFOC-20120606235

PATIENT
  Age: 30 Year
  Sex: Female
  Weight: 47.63 kg

DRUGS (7)
  1. LORCET [Concomitant]
     Active Substance: ACETAMINOPHEN\HYDROCODONE BITARTRATE
     Indication: PAIN
     Dosage: PATIENT TOOK IN 2009
     Route: 048
  2. LORTAB [Concomitant]
     Active Substance: ACETAMINOPHEN\HYDROCODONE BITARTRATE
     Indication: PAIN
     Route: 065
  3. XANAX [Concomitant]
     Active Substance: ALPRAZOLAM
     Indication: PRODUCT USED FOR UNKNOWN INDICATION
     Route: 065
  4. HYDROCODONE [Concomitant]
     Active Substance: HYDROCODONE
     Indication: ARTHROPOD BITE
     Route: 065
     Dates: start: 20100513, end: 201005
  5. ELAVIL [Concomitant]
     Active Substance: AMITRIPTYLINE HYDROCHLORIDE
     Indication: PRODUCT USED FOR UNKNOWN INDICATION
     Route: 065
  6. TYLENOL EXTRA STRENGTH [Suspect]
     Active Substance: ACETAMINOPHEN
     Indication: NAUSEA
     Route: 065
     Dates: start: 201006, end: 20100606
  7. TYLENOL EXTRA STRENGTH [Suspect]
     Active Substance: ACETAMINOPHEN
     Indication: PAIN
     Route: 065
     Dates: start: 201006, end: 20100606

REACTIONS (7)
  - Hepatic failure [Recovering/Resolving]
  - Renal failure acute [Recovering/Resolving]
  - Urinary tract infection [Unknown]
  - Pancreatitis [Unknown]
  - Toxicity to various agents [Unknown]
  - Hepatitis acute [Recovering/Resolving]
  - Periorbital contusion [Unknown]

NARRATIVE: CASE EVENT DATE: 201006
